FAERS Safety Report 9694093 (Version 3)
Quarter: 2014Q3

REPORT INFORMATION
  Report Type: Spontaneous
  Country: US (occurrence: US)
  Receive Date: 20131118
  Receipt Date: 20140825
  Transmission Date: 20150326
  Serious: Yes (Hospitalization, Other)
  Sender: FDA-Public Use
  Company Number: US-009507513-1311USA003862

PATIENT
  Sex: Female
  Weight: 82.86 kg

DRUGS (1)
  1. NUVARING [Suspect]
     Active Substance: ETHINYL ESTRADIOL\ETONOGESTREL
     Indication: CONTRACEPTION
     Dosage: 1 INSERT FOR 21 DAYS, REMOVE 7 DAYS BEFORE INSERTING NEW RING
     Route: 067
     Dates: start: 20090101, end: 20130918

REACTIONS (6)
  - Hypercoagulation [Unknown]
  - Coronary artery embolism [Recovered/Resolved]
  - Transient ischaemic attack [Recovered/Resolved]
  - Coronary artery thrombosis [Recovering/Resolving]
  - Myocardial infarction [Unknown]
  - Hypoaesthesia [Unknown]

NARRATIVE: CASE EVENT DATE: 20130918
